FAERS Safety Report 10077921 (Version 1)
Quarter: 2014Q2

REPORT INFORMATION
  Report Type: Report from Study
  Country: US (occurrence: US)
  Receive Date: 20140415
  Receipt Date: 20140415
  Transmission Date: 20141212
  Serious: Yes (Other)
  Sender: FDA-Public Use
  Company Number: US-ROCHE-1381402

PATIENT
  Age: 62 Year
  Sex: Female

DRUGS (13)
  1. LUCENTIS [Suspect]
     Indication: RETINAL VASCULAR DISORDER
     Route: 050
     Dates: start: 2013
  2. LISINOPRIL/HCTZ [Concomitant]
     Dosage: DOSE:20/25 MG?ONE IN THE MORNING, ONE AT NIGHT
     Route: 065
  3. ASPIRIN [Concomitant]
     Route: 065
  4. CRESTOR [Concomitant]
     Route: 065
  5. CRESTOR [Concomitant]
     Route: 065
  6. SIMVASTATIN [Concomitant]
     Route: 065
  7. LEVOTHYROXINE [Concomitant]
     Indication: THYROID DISORDER
     Route: 065
  8. NITROGLYCERIN [Concomitant]
     Dosage: WHEN NEEDED
     Route: 065
  9. METFORMIN [Concomitant]
     Indication: DIABETES MELLITUS
     Dosage: IN THE MORNING, AT NIGHT
     Route: 065
  10. VITAMIN D3 [Concomitant]
     Dosage: 50,000 UNITS
     Route: 065
  11. ZOLOFT [Concomitant]
     Dosage: EVERY EVENING
     Route: 065
  12. INVOKANA [Concomitant]
     Dosage: SAMPLES
     Route: 065
  13. LANTUS [Concomitant]

REACTIONS (7)
  - Cerebrovascular accident [Unknown]
  - Arterial occlusive disease [Unknown]
  - Blindness unilateral [Unknown]
  - Urticaria [Unknown]
  - Herpes zoster [Unknown]
  - Pruritus [Unknown]
  - Rash [Unknown]
